FAERS Safety Report 5830730-6 (Version None)
Quarter: 2008Q3

REPORT INFORMATION
  Report Type: 
  Country: None (occurrence: None)
  Receive Date: 20080801
  Receipt Date: 20071026
  Transmission Date: 20090109
  Serious: No
  Sender: FDA-Public Use
  Company Number: US-BRISTOL-MYERS SQUIBB COMPANY-13958665

PATIENT
  Age: 68 Year
  Sex: Male

DRUGS (15)
  1. WARFARIN SODIUM [Suspect]
     Dosage: ALSO 42.5MG ON 1/7/07-9/20/07,40MG ON 8/8/07-8/22/07 AND 45MG ON 09/20/07-09/28/07 40 MG ON 10/9/07
     Dates: start: 20070107
  2. RANEXA [Suspect]
     Indication: ANGINA PECTORIS
  3. ZITHROMAX [Suspect]
     Route: 048
     Dates: start: 20070920, end: 20070924
  4. ALBUTEROL [Concomitant]
  5. CLOTRIMAZOLE [Concomitant]
  6. GEMFIBROZIL [Concomitant]
  7. LOSARTAN POTASSIUM [Concomitant]
  8. ROSIGLITAZONE MALEATE [Concomitant]
  9. RANITIDINE HCL [Concomitant]
  10. ATENOLOL [Concomitant]
  11. FUROSEMIDE [Concomitant]
  12. GLYBURIDE [Concomitant]
  13. DICLOFENAC SODIUM [Concomitant]
  14. SIMVASTATIN [Concomitant]
  15. NITROGLYCERIN [Concomitant]

REACTIONS (2)
  - INTERNATIONAL NORMALISED RATIO DECREASED [None]
  - INTERNATIONAL NORMALISED RATIO INCREASED [None]
